FAERS Safety Report 8838705 (Version 1)
Quarter: 2012Q4

REPORT INFORMATION
  Report Type: 
  Country: HU (occurrence: HU)
  Receive Date: 20121012
  Receipt Date: 20121012
  Transmission Date: 20130627
  Serious: Yes (Other)
  Sender: FDA-Public Use
  Company Number: HU-PFIZER INC-2012252709

PATIENT
  Age: 63 Year
  Sex: Female
  Weight: 80 kg

DRUGS (3)
  1. OBRADON [Suspect]
     Indication: BLOOD CHOLESTEROL INCREASED
     Dosage: 40 mg, 1x/day
     Dates: start: 2010
  2. PREDUCTAL [Concomitant]
     Dosage: UNK
     Dates: start: 2004
  3. ASPIRIN PROTECT [Concomitant]
     Dosage: UNK
     Dates: start: 2004

REACTIONS (3)
  - Liver injury [Unknown]
  - Abdominal distension [Recovering/Resolving]
  - Liver function test abnormal [Unknown]
